FAERS Safety Report 18443427 (Version 1)
Quarter: 2020Q4

REPORT INFORMATION
  Report Type: Spontaneous
  Country: EG (occurrence: EG)
  Receive Date: 20201029
  Receipt Date: 20201029
  Transmission Date: 20210114
  Serious: Yes (Hospitalization, Disabling, Other)
  Sender: FDA-Public Use
  Company Number: EG-NOVOPROD-761838

PATIENT
  Age: 828 Month
  Sex: Female
  Weight: 78 kg

DRUGS (10)
  1. MIXTARD 30 [Suspect]
     Active Substance: INSULIN HUMAN
     Indication: DIABETES MELLITUS
     Dosage: 54 IU, QD (32U AM, 22U PM)
     Route: 058
  2. PRAXILENE [Concomitant]
     Active Substance: NAFRONYL
     Indication: ANGIOPATHY
     Dosage: 1 TABLET AFTER EVERY MEAL
     Route: 048
     Dates: start: 20200725
  3. REPARIL [DIETHYLAMINE SALICYLATE;ESCIN] [Concomitant]
     Indication: CATARACT
     Dosage: 3 TABLET DAILY
     Route: 048
  4. CYMBATEX [Concomitant]
     Indication: ANGIOPATHY
     Dosage: 1 TABLET AFTER LUNCH
     Route: 048
     Dates: start: 20200725
  5. EZACARD [Concomitant]
     Indication: ANGIOPATHY
     Dosage: 1 TABLET AFTER LUNCH
     Route: 048
     Dates: start: 20200725
  6. CRESTOR [Concomitant]
     Active Substance: ROSUVASTATIN CALCIUM
     Indication: ANGIOPATHY
     Dosage: 1 TABLET AFTER DINNER
     Route: 048
     Dates: start: 20200725
  7. TEGATOL [Concomitant]
     Indication: ANGIOPATHY
     Dosage: 1 TABLET AFTER DINNER
     Route: 048
     Dates: start: 20200725
  8. DOXIUM [Concomitant]
     Active Substance: CALCIUM DOBESILATE
     Indication: CATARACT
     Dosage: 3 CAPSULE DAILY
     Route: 048
  9. LACRITEARS [Concomitant]
     Dosage: EYE DROPS 3-4 TIMES/DAY
     Route: 065
  10. CONTROLOC [Concomitant]
     Active Substance: PANTOPRAZOLE SODIUM
     Indication: ANGIOPATHY
     Dosage: 1 TABLET AFTER DINNER
     Route: 048
     Dates: start: 20200725

REACTIONS (1)
  - Leg amputation [Recovered/Resolved with Sequelae]

NARRATIVE: CASE EVENT DATE: 20140430
